FAERS Safety Report 24983627 (Version 2)
Quarter: 2025Q1

REPORT INFORMATION
  Report Type: Spontaneous
  Country: US (occurrence: US)
  Receive Date: 20250219
  Receipt Date: 20250331
  Transmission Date: 20250409
  Serious: No
  Sender: ALEXION PHARMACEUTICALS
  Company Number: US-AstraZeneca-CH-00808015AP

PATIENT
  Age: 20 Year

DRUGS (1)
  1. TEZSPIRE [Suspect]
     Active Substance: TEZEPELUMAB-EKKO
     Route: 065

REACTIONS (6)
  - Injury associated with device [Unknown]
  - Amnesia [Unknown]
  - Illness [Unknown]
  - Incorrect dose administered [Unknown]
  - Device use error [Unknown]
  - Wrong technique in device usage process [Unknown]
